FAERS Safety Report 16343067 (Version 9)
Quarter: 2020Q2

REPORT INFORMATION
  Report Type: Report from Study
  Country: TW (occurrence: TW)
  Receive Date: 20190522
  Receipt Date: 20200407
  Transmission Date: 20200713
  Serious: Yes (Hospitalization, Other)
  Sender: FDA-Public Use
  Company Number: PHHY2018TW193419

PATIENT
  Age: 59 Year
  Sex: Male
  Weight: 83.5 kg

DRUGS (32)
  1. VOTRIENT [Suspect]
     Active Substance: PAZOPANIB HYDROCHLORIDE
     Dosage: 800 MG, QD
     Route: 048
     Dates: start: 20181019, end: 20181022
  2. ACETAMINOPHEN. [Concomitant]
     Active Substance: ACETAMINOPHEN
     Indication: PROPHYLAXIS
     Dosage: 500 OT, UNK
     Route: 048
     Dates: start: 20181023, end: 20181104
  3. EXFORGE [Concomitant]
     Active Substance: AMLODIPINE BESYLATE\VALSARTAN
     Indication: HYPERTENSION
     Dosage: 1 OT, UNK
     Route: 048
     Dates: start: 20180828, end: 20190410
  4. FUROSEMIDE. [Concomitant]
     Active Substance: FUROSEMIDE
     Dosage: 20 OT, UNK
     Route: 042
     Dates: start: 20181227, end: 20181227
  5. NORVASC [Concomitant]
     Active Substance: AMLODIPINE BESYLATE
     Dosage: 5 OT, UNK
     Route: 048
     Dates: start: 20190218, end: 20190311
  6. VOTRIENT [Suspect]
     Active Substance: PAZOPANIB HYDROCHLORIDE
     Dosage: 600 MG, QD
     Route: 048
     Dates: start: 20181023, end: 20181217
  7. VOTRIENT [Suspect]
     Active Substance: PAZOPANIB HYDROCHLORIDE
     Dosage: 400 MG, QD
     Route: 048
     Dates: start: 20190107, end: 20190210
  8. SOLU-MEDROL [Concomitant]
     Active Substance: METHYLPREDNISOLONE SODIUM SUCCINATE
     Indication: ANAEMIA PROPHYLAXIS
     Dosage: 40 OT, UNK
     Route: 042
     Dates: start: 20181102, end: 20181102
  9. SOLU-MEDROL [Concomitant]
     Active Substance: METHYLPREDNISOLONE SODIUM SUCCINATE
     Dosage: 40 OT, UNK
     Route: 042
     Dates: start: 20190125, end: 20190125
  10. DIPHENHYDRAMINE. [Concomitant]
     Active Substance: DIPHENHYDRAMINE
     Indication: ANAEMIA PROPHYLAXIS
     Dosage: 30 OT, UNK
     Route: 042
     Dates: start: 20181226, end: 20181227
  11. ATANAAL [Concomitant]
     Indication: HYPERTENSION
     Dosage: 5 OT, UNK
     Route: 048
     Dates: start: 20190125, end: 20190126
  12. FUROSEMIDE. [Concomitant]
     Active Substance: FUROSEMIDE
     Dosage: 20 OT, UNK
     Route: 048
     Dates: start: 20180828, end: 20190419
  13. NORVASC [Concomitant]
     Active Substance: AMLODIPINE BESYLATE
     Indication: HYPERTENSION
     Dosage: 5 OT, UNK
     Route: 048
     Dates: start: 20190128
  14. COLCHICINE. [Concomitant]
     Active Substance: COLCHICINE
     Indication: GOUT
     Dosage: 0.25 OT, UNK
     Route: 048
     Dates: start: 20181218, end: 20181221
  15. EPOETIN BETA [Concomitant]
     Active Substance: ERYTHROPOIETIN
     Dosage: 1 OT, UNK
     Route: 058
     Dates: start: 20190222, end: 20190301
  16. EPOETIN BETA [Concomitant]
     Active Substance: ERYTHROPOIETIN
     Dosage: 1 OT, UNK
     Route: 058
     Dates: start: 20190308, end: 20190329
  17. REHISTACAL B6 [Concomitant]
     Indication: ANAEMIA PROPHYLAXIS
     Dosage: 5 OT, UNK
     Route: 042
     Dates: start: 20181102, end: 20181102
  18. CLONIDINE. [Concomitant]
     Active Substance: CLONIDINE
     Indication: HYPERTENSION
     Dosage: 0.075 OT, UNK
     Route: 048
     Dates: start: 20190128, end: 20190325
  19. FEBUXOSTAT. [Concomitant]
     Active Substance: FEBUXOSTAT
     Indication: GOUT
     Dosage: 40 OT, UNK
     Route: 048
     Dates: start: 20180828, end: 20190313
  20. FUROSEMIDE. [Concomitant]
     Active Substance: FUROSEMIDE
     Dosage: 40 OT, UNK
     Route: 048
     Dates: start: 20190107, end: 20190114
  21. FUROSEMIDE. [Concomitant]
     Active Substance: FUROSEMIDE
     Dosage: 80 OT, UNK
     Route: 048
     Dates: start: 20190215, end: 20190222
  22. ULTRACET [Concomitant]
     Active Substance: ACETAMINOPHEN\TRAMADOL HYDROCHLORIDE
     Indication: PAIN PROPHYLAXIS
     Dosage: 1 OT, UNK
     Route: 050
     Dates: start: 20190218, end: 20190325
  23. FUROSEMIDE. [Concomitant]
     Active Substance: FUROSEMIDE
     Indication: CHRONIC KIDNEY DISEASE
     Dosage: 20 OT, UNK
     Route: 048
     Dates: start: 20180828, end: 20190419
  24. FUROSEMIDE. [Concomitant]
     Active Substance: FUROSEMIDE
     Dosage: 120 OT, UNK
     Route: 048
     Dates: start: 20190222, end: 20190329
  25. EPOETIN BETA [Concomitant]
     Active Substance: ERYTHROPOIETIN
     Indication: CHRONIC KIDNEY DISEASE
     Dosage: 1 OT, UNK
     Route: 058
     Dates: start: 20190121, end: 20190122
  26. REHISTACAL B6 [Concomitant]
     Dosage: 5 OT, UNK
     Route: 042
     Dates: start: 20190125, end: 20190125
  27. DIPHENHYDRAMINE. [Concomitant]
     Active Substance: DIPHENHYDRAMINE
     Dosage: 30 OT, UNK
     Route: 042
     Dates: start: 20190225, end: 20190226
  28. VOTRIENT [Suspect]
     Active Substance: PAZOPANIB HYDROCHLORIDE
     Indication: RENAL CELL CARCINOMA
     Dosage: 600 MG, QD
     Route: 048
     Dates: start: 20181003
  29. ETOFENAMATE [Concomitant]
     Active Substance: ETOFENAMATE
     Indication: ARTHRALGIA
     Dosage: 1 OT, UNK
     Route: 061
     Dates: start: 20190114, end: 20190121
  30. NIFEDIPINE. [Concomitant]
     Active Substance: NIFEDIPINE
     Indication: HYPERTENSION
     Dosage: 30 OT, UNK
     Route: 048
     Dates: start: 20190311, end: 20190325
  31. CAPDON [Concomitant]
     Indication: HYPERTENSION
     Dosage: 25 OT, UNK
     Route: 048
     Dates: start: 20190125, end: 20190128
  32. OSENI [Concomitant]
     Active Substance: ALOGLIPTIN BENZOATE\PIOGLITAZONE HYDROCHLORIDE
     Indication: TYPE 2 DIABETES MELLITUS
     Dosage: 0.5 OT, UNK
     Route: 048
     Dates: start: 20180828, end: 20181025

REACTIONS (10)
  - Epigastric discomfort [Recovered/Resolved]
  - Hiccups [Recovered/Resolved]
  - Arthralgia [Not Recovered/Not Resolved]
  - Pancytopenia [Recovering/Resolving]
  - Gastric ulcer [Recovered/Resolved]
  - Anaemia [Recovered/Resolved]
  - White blood cell count decreased [Recovered/Resolved]
  - Blood creatinine increased [Not Recovered/Not Resolved]
  - Spondylolisthesis [Recovered/Resolved]
  - Abdominal discomfort [Not Recovered/Not Resolved]

NARRATIVE: CASE EVENT DATE: 20181023
